FAERS Safety Report 8031058-9 (Version None)
Quarter: 2012Q1

REPORT INFORMATION
  Report Type: 
  Country: None (occurrence: None)
  Receive Date: 20120109
  Receipt Date: 20120105
  Transmission Date: 20120608
  Serious: Yes (Death, Other)
  Sender: FDA-Public Use
  Company Number: US-ABBOTT-12P-163-0888671-00

PATIENT
  Sex: Male

DRUGS (4)
  1. UNKNOWN MEDICATION [Concomitant]
     Indication: GASTROINTESTINAL DISORDER
  2. UNKNOWN MEDICATIONS [Concomitant]
     Indication: PAIN
  3. HUMIRA [Suspect]
     Indication: RHEUMATOID ARTHRITIS
     Route: 058
     Dates: end: 20110801
  4. UNKNOWN MEDICATION [Concomitant]
     Indication: CARDIAC DISORDER

REACTIONS (5)
  - APHAGIA [None]
  - THROAT TIGHTNESS [None]
  - PNEUMONIA [None]
  - PNEUMONIA ASPIRATION [None]
  - DYSPHAGIA [None]
